FAERS Safety Report 5953535-4 (Version None)
Quarter: 2008Q4

REPORT INFORMATION
  Report Type: 
  Country: None (occurrence: None)
  Receive Date: 20081114
  Receipt Date: 20081110
  Transmission Date: 20090506
  Serious: Yes (Other)
  Sender: FDA-Public Use
  Company Number: AU-ASTRAZENECA-2008AC02921

PATIENT
  Age: 78 Year
  Sex: Female

DRUGS (5)
  1. PROPOFOL [Suspect]
     Indication: SEDATION
     Dosage: 2 BOLUSES OF 20 MG
     Route: 042
  2. THIORIDAZINE [Suspect]
     Indication: SEDATIVE THERAPY
  3. IMIPRAMINE [Suspect]
     Dosage: 25 - 75 MG
  4. TRAMADOL HCL [Concomitant]
     Dosage: 50 - 100 MG QID
  5. MORPHINE [Concomitant]
     Route: 042

REACTIONS (2)
  - TORSADE DE POINTES [None]
  - VENTRICULAR FIBRILLATION [None]
